FAERS Safety Report 11529013 (Version 1)
Quarter: 2015Q3

REPORT INFORMATION
  Report Type: Spontaneous
  Country: US (occurrence: None)
  Receive Date: 20150918
  Receipt Date: 20150918
  Transmission Date: 20151125
  Serious: Yes (Other)
  Sender: FDA-Public Use
  Company Number: None

PATIENT
  Age: 50 Year
  Sex: Female

DRUGS (1)
  1. TASIGNA [Suspect]
     Active Substance: NILOTINIB
     Indication: CHRONIC MYELOID LEUKAEMIA
     Dosage: 2 CAPS BID
     Route: 048
     Dates: start: 20150721

REACTIONS (3)
  - Dizziness [None]
  - Myalgia [None]
  - Bone pain [None]

NARRATIVE: CASE EVENT DATE: 201509
